FAERS Safety Report 5998330-5 (Version None)
Quarter: 2008Q4

REPORT INFORMATION
  Report Type: 
  Country: None (occurrence: None)
  Receive Date: 20081213
  Receipt Date: 20080626
  Transmission Date: 20090506
  Serious: No
  Sender: FDA-Public Use
  Company Number: US-AMGEN-KDL290430

PATIENT
  Sex: Female

DRUGS (2)
  1. ENBREL [Suspect]
     Indication: RHEUMATOID ARTHRITIS
     Route: 058
  2. ARAVA [Concomitant]
     Route: 048

REACTIONS (4)
  - DIARRHOEA [None]
  - FLATULENCE [None]
  - INJECTION SITE ERYTHEMA [None]
  - INJECTION SITE PAIN [None]
